FAERS Safety Report 5108014-3 (Version None)
Quarter: 2006Q3

REPORT INFORMATION
  Report Type: 
  Country: None (occurrence: None)
  Receive Date: 20060914
  Receipt Date: 20060901
  Transmission Date: 20061208
  Serious: Yes (Hospitalization)
  Sender: FDA-Public Use
  Company Number: 2006105544

PATIENT
  Age: 83 Year
  Sex: Male

DRUGS (4)
  1. SU-011,248 (SUNITINIB MALATE) [Suspect]
     Indication: METASTATIC RENAL CELL CARCINOMA
     Dosage: 25 MG (25 MG, OM - INTERVAL: DAILY), ORAL
     Route: 048
     Dates: start: 20060815, end: 20060830
  2. HYDROCHLOROTHIAZDE TAB [Concomitant]
  3. POTASSIUM CHLORIDE [Concomitant]
  4. DIOSMIN [Concomitant]

REACTIONS (2)
  - ABDOMINAL PAIN UPPER [None]
  - PYREXIA [None]
